FAERS Safety Report 7825090-5 (Version None)
Quarter: 2011Q4

REPORT INFORMATION
  Report Type: 
  Country: None (occurrence: None)
  Receive Date: 20111019
  Receipt Date: 20110913
  Transmission Date: 20120403
  Serious: No
  Sender: FDA-Public Use
  Company Number: US-BRISTOL-MYERS SQUIBB COMPANY-16042343

PATIENT
  Age: 81 Year
  Sex: Female

DRUGS (4)
  1. PRADAXA [Concomitant]
  2. METOPROLOL TARTRATE [Concomitant]
  3. LANOXIN [Concomitant]
  4. AVALIDE [Suspect]
     Dosage: 150/12.5MG

REACTIONS (1)
  - DYSPEPSIA [None]
